FAERS Safety Report 5498539-3 (Version None)
Quarter: 2007Q4

REPORT INFORMATION
  Report Type: 
  Country: None (occurrence: None)
  Receive Date: 20071026
  Receipt Date: 20071019
  Transmission Date: 20080405
  Serious: Yes (Hospitalization)
  Sender: FDA-Public Use
  Company Number: PHEH2007US13868

PATIENT
  Age: 83 Year
  Sex: Female

DRUGS (8)
  1. EXJADE [Suspect]
     Indication: IRON OVERLOAD
     Dosage: 500 MG, QD
     Route: 048
     Dates: start: 20070923, end: 20070930
  2. NITROGLYCERIN [Concomitant]
     Dosage: 0.5 UNK, BID
  3. LEVOTHYROXINE SODIUM [Concomitant]
     Dosage: 125 MG, QD
  4. ATENOLOL [Concomitant]
     Dosage: 75 MG, QD
  5. LASIX [Concomitant]
     Dosage: 80 MG, QD
  6. PEPCID [Concomitant]
     Dosage: 20 MG, BID
  7. ARANESP [Concomitant]
     Dosage: SQ Q2WEEKS
  8. COUMADIN [Concomitant]
     Dosage: 2.5 MG, QD

REACTIONS (5)
  - BLOOD CREATININE INCREASED [None]
  - BLOOD UREA INCREASED [None]
  - BRAIN NATRIURETIC PEPTIDE INCREASED [None]
  - DIARRHOEA [None]
  - URINARY TRACT INFECTION ENTEROCOCCAL [None]
